FAERS Safety Report 7603036-2 (Version None)
Quarter: 2011Q3

REPORT INFORMATION
  Report Type: 
  Country: None (occurrence: None)
  Receive Date: 20110712
  Receipt Date: 20110712
  Transmission Date: 20111222
  Serious: Yes (Death, Life-Threatening, Hospitalization, Disabling, Congenital Anomaly, Other)
  Sender: FDA-Public Use
  Company Number: None

PATIENT
  Age: 9 Year
  Sex: Male
  Weight: 31.751 kg

DRUGS (1)
  1. STRATTERA [Suspect]
     Indication: ATTENTION DEFICIT/HYPERACTIVITY DISORDER
     Dosage: 25,G
     Route: 048
     Dates: start: 20050820, end: 20110824

REACTIONS (4)
  - NAIL DISORDER [None]
  - PAIN IN EXTREMITY [None]
  - NAIL DISCOLOURATION [None]
  - SKIN MASS [None]
